FAERS Safety Report 10668321 (Version 1)
Quarter: 2014Q4

REPORT INFORMATION
  Report Type: Spontaneous
  Country: FR (occurrence: FR)
  Receive Date: 20141222
  Receipt Date: 20141222
  Transmission Date: 20150529
  Serious: Yes (Hospitalization, Other)
  Sender: FDA-Public Use
  Company Number: FR-PFIZER INC-2014346305

PATIENT
  Age: 69 Year
  Sex: Female

DRUGS (13)
  1. LYRICA [Suspect]
     Active Substance: PREGABALIN
     Dosage: 25 MG, 2X/DAY
     Route: 048
     Dates: start: 20141011, end: 20141013
  2. CEFTRIAXONE SODIUM. [Suspect]
     Active Substance: CEFTRIAXONE SODIUM
     Indication: GASTROINTESTINAL DISORDER
     Dosage: 1 G, 1X/DAY
     Route: 042
     Dates: start: 20141010, end: 20141012
  3. PRINCI B [Concomitant]
     Active Substance: PYRIDOXINE\THIAMINE
  4. PAROXETINE HYDROCHLORIDE. [Concomitant]
     Active Substance: PAROXETINE HYDROCHLORIDE
  5. FLAGYL [Concomitant]
     Active Substance: METRONIDAZOLE\METRONIDAZOLE HYDROCHLORIDE
     Indication: GASTROINTESTINAL DISORDER
     Dosage: UNK
     Dates: start: 20141010, end: 20141011
  6. ZYLORIC [Concomitant]
     Active Substance: ALLOPURINOL
     Dosage: 300 MG, UNK
  7. NOVORAPID [Concomitant]
     Active Substance: INSULIN ASPART
     Dosage: 100 U/ML
  8. CALCIPARINE SOUS CUTANEE [Concomitant]
     Dosage: 5 000 IU/0.2 ML
     Route: 058
  9. ROVAMYCINE [Suspect]
     Active Substance: SPIRAMYCIN
     Indication: PNEUMONIA
     Dosage: 1 DF(1.5 MILLION IU), 3X/DAY
     Route: 042
     Dates: start: 20141011, end: 20141013
  10. PARACETAMOL [Concomitant]
     Active Substance: ACETAMINOPHEN
  11. SERESTA [Suspect]
     Active Substance: OXAZEPAM
     Dosage: 10 MG, 2X/DAY
     Route: 048
     Dates: start: 20141012, end: 20141012
  12. TAHOR [Concomitant]
     Active Substance: ATORVASTATIN CALCIUM
     Dosage: 40 MG, UNK
  13. NEBIVOLOL HYDROCHLORIDE [Concomitant]
     Active Substance: NEBIVOLOL HYDROCHLORIDE

REACTIONS (3)
  - Seizure [Recovered/Resolved]
  - Drug level above therapeutic [Unknown]
  - Status epilepticus [Recovered/Resolved]

NARRATIVE: CASE EVENT DATE: 20141013
